FAERS Safety Report 7266597-1 (Version None)
Quarter: 2011Q1

REPORT INFORMATION
  Report Type: 
  Country: None (occurrence: None)
  Receive Date: 20110131
  Receipt Date: 20110124
  Transmission Date: 20110831
  Serious: Yes (Hospitalization, Other)
  Sender: FDA-Public Use
  Company Number: AU-MERCK-1011USA02744

PATIENT
  Age: 65 Year
  Sex: Male
  Weight: 84 kg

DRUGS (13)
  1. VENTOLIN [Concomitant]
     Route: 065
  2. NEXIUM [Suspect]
     Route: 065
  3. VERAPAMIL [Concomitant]
     Route: 065
  4. ALLOPURINOL [Concomitant]
     Route: 065
  5. SERETIDE [Concomitant]
     Route: 065
  6. XALATAN [Concomitant]
     Route: 065
  7. JANUVIA [Suspect]
     Route: 048
     Dates: start: 20100101
  8. JANUMET [Suspect]
     Route: 048
     Dates: start: 20100101
  9. ATACAND [Concomitant]
     Route: 065
  10. ATROVENT [Concomitant]
     Route: 065
  11. TELFAST [Concomitant]
     Route: 065
  12. FLECAINIDE ACETATE [Concomitant]
     Route: 065
  13. ZYLOPRIM [Concomitant]
     Route: 065

REACTIONS (5)
  - GAMMA-GLUTAMYLTRANSFERASE INCREASED [None]
  - BLOOD ALKALINE PHOSPHATASE INCREASED [None]
  - GASTROOESOPHAGEAL REFLUX DISEASE [None]
  - ALANINE AMINOTRANSFERASE INCREASED [None]
  - ASPARTATE AMINOTRANSFERASE INCREASED [None]
